FAERS Safety Report 25650348 (Version 1)
Quarter: 2025Q3

REPORT INFORMATION
  Report Type: Spontaneous
  Country: GB (occurrence: GB)
  Receive Date: 20250806
  Receipt Date: 20250806
  Transmission Date: 20251020
  Serious: Yes (Other)
  Sender: ELI LILLY AND COMPANY
  Company Number: None

PATIENT

DRUGS (4)
  1. MOUNJARO [Suspect]
     Active Substance: TIRZEPATIDE
     Indication: Type 2 diabetes mellitus
     Route: 065
  2. LOSARTAN [Concomitant]
     Active Substance: LOSARTAN
     Indication: Hypertension
     Dosage: 100 MG, DAILY
     Route: 065
  3. METFORMIN [Concomitant]
     Active Substance: METFORMIN HYDROCHLORIDE
     Indication: Diabetes mellitus
     Route: 065
  4. PANTOZOL [Concomitant]
     Active Substance: PANTOPRAZOLE SODIUM
     Indication: Gastrooesophageal reflux disease
     Route: 065

REACTIONS (17)
  - Bipolar I disorder [Recovered/Resolved]
  - Headache [Recovered/Resolved]
  - Hypertension [Recovered/Resolved]
  - Blood insulin abnormal [Recovered/Resolved]
  - Mood swings [Recovered/Resolved]
  - Anxiety [Recovered/Resolved]
  - Muscle twitching [Recovered/Resolved]
  - Emotional distress [Recovered/Resolved]
  - Musculoskeletal discomfort [Recovered/Resolved]
  - Electrolyte imbalance [Unknown]
  - Protein total decreased [Unknown]
  - Head discomfort [Unknown]
  - Dehydration [Unknown]
  - Off label use [Unknown]
  - Bone density decreased [Unknown]
  - Muscle disorder [Unknown]
  - Decreased appetite [Unknown]
